FAERS Safety Report 9496340 (Version 1)
Quarter: 2013Q3

REPORT INFORMATION
  Report Type: Spontaneous
  Country: NL (occurrence: NL)
  Receive Date: 20130904
  Receipt Date: 20130904
  Transmission Date: 20140515
  Serious: Yes (Hospitalization)
  Sender: FDA-Public Use
  Company Number: NL-AMGEN-NLDSP2013061860

PATIENT
  Age: 56 Year
  Sex: Female

DRUGS (4)
  1. NEULASTA [Suspect]
     Indication: PRODUCT USED FOR UNKNOWN INDICATION
     Dosage: 6 MG, Q3WK
     Route: 058
     Dates: start: 20130810, end: 20130831
  2. CHEMOTHERAPEUTICS [Concomitant]
     Indication: GASTRIC NEOPLASM
     Dosage: UNK
  3. PRIMPERAN [Concomitant]
     Dosage: UNK UNK, AS NEEDED
  4. PARACETAMOL [Concomitant]
     Dosage: UNK UNK, AS NEEDED

REACTIONS (2)
  - Dehydration [Recovered/Resolved]
  - Vomiting [Recovered/Resolved]
